FAERS Safety Report 11191651 (Version 1)
Quarter: 2015Q2

REPORT INFORMATION
  Report Type: Report from Study
  Country: US (occurrence: None)
  Receive Date: 20150603
  Receipt Date: 20150603
  Transmission Date: 20150821
  Serious: No
  Sender: FDA-Public Use
  Company Number: 2015TASUS000756

PATIENT
  Age: 28 Year
  Sex: Female
  Weight: 68.9 kg

DRUGS (9)
  1. ADDERALL [Concomitant]
     Active Substance: AMPHETAMINE ASPARTATE\AMPHETAMINE SULFATE\DEXTROAMPHETAMINE SACCHARATE\DEXTROAMPHETAMINE SULFATE
  2. ZOFRAN (ONDANSETRON HYDROCHLORIDE) [Concomitant]
  3. ORAL CONTRACEPTIVE NOS [Concomitant]
     Active Substance: UNSPECIFIED INGREDIENT
  4. SEROQUEL [Concomitant]
     Active Substance: QUETIAPINE FUMARATE
  5. ZOLOFT [Concomitant]
     Active Substance: SERTRALINE HYDROCHLORIDE
  6. LITHIUM (LITHIUM CARBONATE) [Concomitant]
  7. VALIUM [Concomitant]
     Active Substance: DIAZEPAM
  8. HETLIOZ [Suspect]
     Active Substance: TASIMELTEON
     Indication: CIRCADIAN RHYTHM SLEEP DISORDER
     Route: 048
     Dates: start: 20150408
  9. PERCOCET (OXYCODONE HYDROCHLORIDE, PARACETAMOL) [Concomitant]

REACTIONS (4)
  - Headache [None]
  - Psychogenic pain disorder [None]
  - Diarrhoea [None]
  - Nightmare [None]

NARRATIVE: CASE EVENT DATE: 20150412
